FAERS Safety Report 17427379 (Version 1)
Quarter: 2020Q1

REPORT INFORMATION
  Report Type: Report from Study
  Country: None (occurrence: US)
  Receive Date: 20200218
  Receipt Date: 20200218
  Transmission Date: 20200409
  Serious: Yes (Hospitalization, Other)
  Sender: FDA-Public Use
  Company Number: US-ABBVIE-20P-163-3274243-00

PATIENT
  Sex: Female

DRUGS (1)
  1. IMBRUVICA [Suspect]
     Active Substance: IBRUTINIB
     Indication: LYMPHOCYTIC LEUKAEMIA
     Route: 048
     Dates: start: 20190801

REACTIONS (7)
  - Cholecystectomy [Unknown]
  - Sepsis [Unknown]
  - Dry mouth [Unknown]
  - Muscle spasms [Unknown]
  - Breast mass [Unknown]
  - Dry skin [Unknown]
  - Pancreatitis [Unknown]

NARRATIVE: CASE EVENT DATE: 2019
